FAERS Safety Report 15644758 (Version 3)
Quarter: 2018Q4

REPORT INFORMATION
  Report Type: Spontaneous
  Country: US (occurrence: US)
  Receive Date: 20181121
  Receipt Date: 20181210
  Transmission Date: 20190205
  Serious: Yes (Other)
  Sender: FDA-Public Use
  Company Number: US-GLAXOSMITHKLINE-US2018GSK209857

PATIENT
  Age: 57 Year
  Sex: Female

DRUGS (2)
  1. BENLYSTA [Suspect]
     Active Substance: BELIMUMAB
     Indication: SYSTEMIC LUPUS ERYTHEMATOSUS
     Dosage: UNK
  2. PREDNISONE. [Suspect]
     Active Substance: PREDNISONE
     Indication: PRODUCT USED FOR UNKNOWN INDICATION

REACTIONS (14)
  - Drug ineffective [Not Recovered/Not Resolved]
  - Ill-defined disorder [Not Recovered/Not Resolved]
  - Weight decreased [Not Recovered/Not Resolved]
  - Irritability [Not Recovered/Not Resolved]
  - Anxiety [Unknown]
  - Frustration tolerance decreased [Not Recovered/Not Resolved]
  - Restlessness [Unknown]
  - Feeling abnormal [Unknown]
  - Condition aggravated [Not Recovered/Not Resolved]
  - Drug effect incomplete [Unknown]
  - Systemic lupus erythematosus [Unknown]
  - Fatigue [Not Recovered/Not Resolved]
  - Stress [Unknown]
  - Pain [Unknown]
